FAERS Safety Report 5773127-X (Version None)
Quarter: 2008Q2

REPORT INFORMATION
  Report Type: 
  Country: None (occurrence: None)
  Receive Date: 20080615
  Receipt Date: 20080331
  Transmission Date: 20081010
  Serious: No
  Sender: FDA-Public Use
  Company Number: US-BAYER-200811425BCC

PATIENT
  Age: 83 Year
  Sex: Female
  Weight: 66 kg

DRUGS (3)
  1. ALEVE [Suspect]
     Indication: ANALGESIA
     Dosage: TOTAL DAILY DOSE: 220 MG  UNIT DOSE: 220 MG
     Route: 048
     Dates: start: 20080226
  2. AMOXICILLIN [Concomitant]
  3. COZAAR [Concomitant]

REACTIONS (1)
  - PAIN [None]
